FAERS Safety Report 9147023 (Version 2)
Quarter: 2013Q1

REPORT INFORMATION
  Report Type: Spontaneous
  Country: JP (occurrence: None)
  Receive Date: 20130215
  Receipt Date: 20130221
  Transmission Date: 20140127
  Serious: Yes (Death)
  Sender: FDA-Public Use
  Company Number: 2013-017815

PATIENT
  Age: 61 Year
  Sex: Female

DRUGS (1)
  1. EYLEA [Suspect]
     Indication: AGE-RELATED MACULAR DEGENERATION
     Dosage: 2 MG,  ONCE  INTRAOCULAR?JAN-2013  /  JAN-2013
     Route: 031
     Dates: start: 20130104, end: 20130104

REACTIONS (1)
  - Brain stem haemorrhage [None]
